FAERS Safety Report 4380864-0 (Version None)
Quarter: 2004Q2

REPORT INFORMATION
  Report Type: 
  Country: None (occurrence: None)
  Receive Date: 20040616
  Receipt Date: 20040604
  Transmission Date: 20050107
  Serious: Yes (Hospitalization)
  Sender: FDA-Public Use
  Company Number: 04P-101-0262796-00

PATIENT
  Age: 21 Year
  Sex: Female

DRUGS (1)
  1. HYTRIN [Suspect]
     Dosage: 2 MG

REACTIONS (1)
  - GASTROENTERITIS [None]
